FAERS Safety Report 10146450 (Version 1)
Quarter: 2014Q2

REPORT INFORMATION
  Report Type: Report from Study
  Country: GB (occurrence: GB)
  Receive Date: 20140501
  Receipt Date: 20140501
  Transmission Date: 20141212
  Serious: Yes (Hospitalization, Other)
  Sender: FDA-Public Use
  Company Number: GB-ABBVIE-14P-167-1230408-00

PATIENT
  Age: 67 Year
  Sex: Female
  Weight: 67.4 kg

DRUGS (1)
  1. HUMIRA [Suspect]
     Indication: PSORIASIS
     Route: 058
     Dates: start: 20120426

REACTIONS (2)
  - Respiratory disorder [Recovered/Resolved]
  - Infection [Recovered/Resolved]
